FAERS Safety Report 5807521-5 (Version None)
Quarter: 2008Q3

REPORT INFORMATION
  Report Type: 
  Country: None (occurrence: None)
  Receive Date: 20080711
  Receipt Date: 20080703
  Transmission Date: 20090109
  Serious: Yes (Hospitalization)
  Sender: FDA-Public Use
  Company Number: GB-ABBOTT-08P-167-0461237-00

PATIENT
  Age: 58 Year
  Sex: Male

DRUGS (1)
  1. ERYTHROMYCIN [Suspect]
     Indication: HERPES ZOSTER
     Dosage: FOUR TIMES DAILY
     Route: 048
     Dates: start: 20071103, end: 20071105

REACTIONS (3)
  - CHEST DISCOMFORT [None]
  - ELECTROCARDIOGRAM ST SEGMENT ELEVATION [None]
  - STOMACH DISCOMFORT [None]
